FAERS Safety Report 17011251 (Version 1)
Quarter: 2019Q4

REPORT INFORMATION
  Report Type: Spontaneous
  Country: US (occurrence: US)
  Receive Date: 20191108
  Receipt Date: 20191108
  Transmission Date: 20200122
  Serious: No
  Sender: FDA-Public Use
  Company Number: US-NOVOPROD-638789

PATIENT
  Age: 86 Year
  Sex: Male

DRUGS (2)
  1. TRESIBA [Suspect]
     Active Substance: INSULIN DEGLUDEC
     Indication: TYPE 2 DIABETES MELLITUS
     Dosage: 26 UNITS IF BLOOD SUGAR {150 MG/DL, 28 UNITS IF BLOOD SUGAR }150 MG/DL
     Route: 058
  2. NOVOLOG [Concomitant]
     Active Substance: INSULIN ASPART
     Indication: TYPE 2 DIABETES MELLITUS
     Dosage: 4 UNITS FOR LIGHT MEAL, 6 UNITS FOR MEDIUM MEAL, 8 UNITS FOR LARGE MEAL
     Route: 058

REACTIONS (1)
  - Dizziness [Not Recovered/Not Resolved]
